FAERS Safety Report 23862157 (Version 3)
Quarter: 2024Q2

REPORT INFORMATION
  Report Type: Spontaneous
  Country: US (occurrence: US)
  Receive Date: 20240516
  Receipt Date: 20240627
  Transmission Date: 20240716
  Serious: Yes (Hospitalization, Other)
  Sender: FDA-Public Use
  Company Number: None

PATIENT

DRUGS (17)
  1. FLUOXETINE [Interacting]
     Active Substance: FLUOXETINE HYDROCHLORIDE
     Indication: Bipolar disorder
     Dosage: 60 MILLIGRAM, QD (PER DAY),  CAPSULE
     Route: 048
  2. FLUOXETINE [Interacting]
     Active Substance: FLUOXETINE HYDROCHLORIDE
     Dosage: 20 MILLIGRAM, QD (PER DAY), CAPSULE
     Route: 048
     Dates: start: 202105, end: 202309
  3. FLUOXETINE [Interacting]
     Active Substance: FLUOXETINE HYDROCHLORIDE
     Dosage: 40 MILLIGRAM, QD (PER DAY), ON AND OFF, CAPSULE
     Route: 048
     Dates: start: 202105
  4. TRAZODONE [Interacting]
     Active Substance: TRAZODONE HYDROCHLORIDE
     Indication: Bipolar disorder
     Dosage: 50 MILLIGRAM, PRN, TAKING IT ON AND OFF , TABLET
     Route: 048
     Dates: start: 20210511, end: 20230626
  5. TRAZODONE [Interacting]
     Active Substance: TRAZODONE HYDROCHLORIDE
     Dosage: UNK
     Route: 065
  6. QUETIAPINE [Interacting]
     Active Substance: QUETIAPINE
     Indication: Bipolar disorder
     Dosage: 600 MILLIGRAM, AT BED TIME
     Route: 065
  7. QUETIAPINE [Interacting]
     Active Substance: QUETIAPINE
     Dosage: 400 MILLIGRAM, QD
     Route: 065
  8. QUETIAPINE [Interacting]
     Active Substance: QUETIAPINE
     Dosage: 300 MILLIGRAM, AT BED TIME; PER DAY
     Route: 065
  9. QUETIAPINE [Interacting]
     Active Substance: QUETIAPINE
     Dosage: 500 MILLIGRAM, QD (PER DAY)
     Route: 048
     Dates: start: 202105, end: 202309
  10. QUETIAPINE [Interacting]
     Active Substance: QUETIAPINE
     Dosage: 800 MILLIGRAM, QD (PER DAY), TOTAL DAILY DOSE; ON AND OFF
     Route: 048
     Dates: start: 202105
  11. CEPHALEXIN [Concomitant]
     Active Substance: CEPHALEXIN
     Indication: Cellulitis
     Dosage: 500 MILLIGRAM, EVERY 6 HRS
     Route: 065
  12. DIPHENHYDRAMINE [Concomitant]
     Active Substance: DIPHENHYDRAMINE
     Indication: Agitation
     Dosage: 50 MILLIGRAM
     Route: 048
  13. HALOPERIDOL [Concomitant]
     Active Substance: HALOPERIDOL
     Indication: Agitation
     Dosage: 5 MILLIGRAM
     Route: 048
  14. LORAZEPAM [Concomitant]
     Active Substance: LORAZEPAM
     Indication: Agitation
     Dosage: 2 MILLIGRAM
     Route: 048
  15. METHAMPHETAMINE [Concomitant]
     Active Substance: METHAMPHETAMINE
     Indication: Product used for unknown indication
     Dosage: UNK; 5 TO 6 TIMES A WEEK
     Route: 065
  16. ACETAMINOPHEN [Concomitant]
     Active Substance: ACETAMINOPHEN
     Indication: Arthritis
     Dosage: 650 MILLIGRAM, EVERY 4 HRS; EVERY 4 HOURS AS NEEDED
     Route: 065
  17. HYDROXYZINE [Concomitant]
     Active Substance: HYDROXYZINE HYDROCHLORIDE
     Indication: Anxiety
     Dosage: 50 MILLIGRAM, EVERY 4 HRS; EVERY 4 HOURS AS NEEDED
     Route: 065

REACTIONS (3)
  - Drug interaction [Unknown]
  - Priapism [Recovered/Resolved]
  - Off label use [Unknown]

NARRATIVE: CASE EVENT DATE: 20230601
